FAERS Safety Report 24639988 (Version 1)
Quarter: 2024Q4

REPORT INFORMATION
  Report Type: Spontaneous
  Country: IT (occurrence: IT)
  Receive Date: 20241120
  Receipt Date: 20241120
  Transmission Date: 20250115
  Serious: Yes (Other)
  Sender: ASTELLAS
  Company Number: IT-ASTELLAS-2024-AER-018890

PATIENT
  Age: 70 Year
  Sex: Female

DRUGS (1)
  1. XOSPATA [Suspect]
     Active Substance: GILTERITINIB
     Indication: Product used for unknown indication
     Dosage: 120 MG DAILY
     Route: 065

REACTIONS (2)
  - Pancytopenia [Unknown]
  - Fatigue [Unknown]
